FAERS Safety Report 5103626-5 (Version None)
Quarter: 2006Q3

REPORT INFORMATION
  Report Type: 
  Country: None (occurrence: None)
  Receive Date: 20060911
  Receipt Date: 20060911
  Transmission Date: 20061208
  Serious: Yes (Hospitalization, Other)
  Sender: FDA-Public Use
  Company Number: None

PATIENT
  Sex: Male

DRUGS (1)
  1. CLOPIDOGREL [Suspect]
     Dosage: 75MG  ONCE DAILY  PO
     Route: 048
     Dates: start: 20060824, end: 20060831

REACTIONS (1)
  - EPISTAXIS [None]
